FAERS Safety Report 6906735-0 (Version None)
Quarter: 2010Q3

REPORT INFORMATION
  Report Type: 
  Country: None (occurrence: None)
  Receive Date: 20100804
  Receipt Date: 20100729
  Transmission Date: 20110219
  Serious: Yes (Hospitalization, Other)
  Sender: FDA-Public Use
  Company Number: JP-PFIZER INC-2010092411

PATIENT
  Age: 73 Year
  Sex: Female
  Weight: 40 kg

DRUGS (19)
  1. SERTRALINE HYDROCHLORIDE [Suspect]
     Indication: DEPRESSION
     Dosage: 50 MG, UNK
  2. ATORVASTATIN CALCIUM [Suspect]
  3. PAROXETINE [Suspect]
     Indication: DEPRESSION
     Dosage: 40 MG, UNK
  4. TRAZODONE HCL [Suspect]
     Dosage: 125 MG, UNK
  5. LAMOTRIGINE [Suspect]
     Indication: DEPRESSION
     Dosage: 50 MG, UNK
  6. FUROSEMIDE [Suspect]
  7. LITHIUM CARBONATE [Suspect]
     Indication: DEPRESSION
     Dosage: 400 MG, UNK
  8. ACETYLSALICYLIC ACID [Suspect]
  9. WARFARIN [Suspect]
  10. ISOSORBIDE [Suspect]
  11. ENALAPRIL [Suspect]
  12. BISOPROLOL [Suspect]
  13. AMOXAPINE [Suspect]
     Indication: DEPRESSION
     Dosage: 75 MG, UNK
  14. MILNACIPRAN [Suspect]
     Indication: DEPRESSION
     Dosage: 50 MG, UNK
  15. MIANSERIN [Suspect]
     Indication: DEPRESSION
     Dosage: 10 MG, UNK
  16. SETIPTILINE [Suspect]
     Indication: DEPRESSION
     Dosage: 3 MG, UNK
  17. MAPROTILINE [Suspect]
     Indication: DEPRESSION
     Dosage: 75 MG, UNK
  18. CLONAZEPAM [Suspect]
     Indication: DEPRESSION
     Dosage: 1.5 MG, UNK
  19. CLOMIPRAMINE [Suspect]
     Indication: DEPRESSION
     Dosage: 10 MG, UNK

REACTIONS (3)
  - DEPRESSION [None]
  - MULTIPLE-DRUG RESISTANCE [None]
  - SINUS BRADYCARDIA [None]
